FAERS Safety Report 4991732-5 (Version None)
Quarter: 2006Q2

REPORT INFORMATION
  Report Type: 
  Country: None (occurrence: None)
  Receive Date: 20060504
  Receipt Date: 20060421
  Transmission Date: 20061013
  Serious: Yes (Other)
  Sender: FDA-Public Use
  Company Number: DE-GLAXOSMITHKLINE-D0049520A

PATIENT
  Age: 35 Year
  Sex: Female
  Weight: 62 kg

DRUGS (1)
  1. LAMICTAL [Suspect]
     Indication: EPILEPSY
     Dosage: 75MG PER DAY
     Route: 048

REACTIONS (2)
  - MENSTRUAL DISORDER [None]
  - PREMATURE LABOUR [None]
